FAERS Safety Report 8372515-5 (Version None)
Quarter: 2012Q2

REPORT INFORMATION
  Report Type: 
  Country: None (occurrence: None)
  Receive Date: 20120521
  Receipt Date: 20120514
  Transmission Date: 20120825
  Serious: Yes (Hospitalization)
  Sender: FDA-Public Use
  Company Number: PHHY2010US45873

PATIENT
  Sex: Female

DRUGS (2)
  1. GLEEVEC [Suspect]
     Indication: CHRONIC MYELOID LEUKAEMIA
     Dosage: 400 MG, QD
     Route: 048
     Dates: start: 20080714
  2. GLEEVEC [Suspect]
     Dosage: 400 MG, QD
     Route: 048

REACTIONS (6)
  - ARTHRITIS [None]
  - CARDIAC DISORDER [None]
  - MYALGIA [None]
  - BONE PAIN [None]
  - MUSCLE DISORDER [None]
  - DIARRHOEA [None]
